FAERS Safety Report 25098576 (Version 1)
Quarter: 2025Q1

REPORT INFORMATION
  Report Type: Spontaneous
  Country: GB (occurrence: GB)
  Receive Date: 20250320
  Receipt Date: 20250320
  Transmission Date: 20250409
  Serious: Yes (Other)
  Sender: ALKEM
  Company Number: None

PATIENT
  Age: 65 Year
  Sex: Male
  Weight: 68 kg

DRUGS (1)
  1. FINASTERIDE [Suspect]
     Active Substance: FINASTERIDE
     Indication: Prostatomegaly
     Route: 065
     Dates: start: 20241109, end: 20250214

REACTIONS (2)
  - Depressed mood [Recovered/Resolved]
  - Libido decreased [Recovered/Resolved]

NARRATIVE: CASE EVENT DATE: 20250201
